FAERS Safety Report 7132315-0 (Version None)
Quarter: 2010Q4

REPORT INFORMATION
  Report Type: 
  Country: None (occurrence: None)
  Receive Date: 20101202
  Receipt Date: 20101122
  Transmission Date: 20110411
  Serious: Yes (Hospitalization, Other)
  Sender: FDA-Public Use
  Company Number: US-TEVA-256363USA

PATIENT
  Age: 30 Year
  Sex: Female

DRUGS (3)
  1. AMIODARONE HYDROCHLORIDE [Suspect]
  2. DILTIAZEM [Suspect]
  3. METOPROLOL SUCCINATE [Suspect]

REACTIONS (2)
  - CARDIOGENIC SHOCK [None]
  - OVERDOSE [None]
